FAERS Safety Report 10162397 (Version 3)
Quarter: 2014Q2

REPORT INFORMATION
  Report Type: Spontaneous
  Country: US (occurrence: US)
  Receive Date: 20140509
  Receipt Date: 20140605
  Transmission Date: 20141212
  Serious: Yes (Other)
  Sender: FDA-Public Use
  Company Number: US-SA-CART-1000083

PATIENT
  Age: 15 Year
  Sex: Male
  Weight: 68.03 kg

DRUGS (1)
  1. CARTICEL [Suspect]
     Indication: CARTILAGE INJURY
     Route: 014

REACTIONS (2)
  - Wound dehiscence [Not Recovered/Not Resolved]
  - Staphylococcal infection [Not Recovered/Not Resolved]
